FAERS Safety Report 6700674-6 (Version None)
Quarter: 2010Q2

REPORT INFORMATION
  Report Type: 
  Country: None (occurrence: None)
  Receive Date: 20100428
  Receipt Date: 20100423
  Transmission Date: 20101027
  Serious: Yes (Death)
  Sender: FDA-Public Use
  Company Number: PHHY2010JP26429

PATIENT
  Sex: Male
  Weight: 60 kg

DRUGS (7)
  1. NEORAL [Suspect]
     Indication: DERMATITIS ATOPIC
     Dosage: 100 MG DAILY
     Route: 048
     Dates: start: 20090626, end: 20090821
  2. NEORAL [Suspect]
     Dosage: 100 MG DAILY
     Route: 048
     Dates: start: 20090911, end: 20090925
  3. ALLEGRA [Concomitant]
     Indication: DERMATITIS ATOPIC
     Dosage: 120 MG
     Route: 048
  4. KINDAVATE [Concomitant]
     Indication: DERMATITIS ATOPIC
     Route: 061
  5. ANTEBATE [Concomitant]
     Indication: DERMATITIS ATOPIC
     Route: 061
  6. HIRUDOID [Concomitant]
     Indication: DERMATITIS ATOPIC
     Route: 061
  7. PROTOPIC [Concomitant]
     Indication: DERMATITIS ATOPIC
     Route: 061

REACTIONS (1)
  - COMPLETED SUICIDE [None]
